FAERS Safety Report 9140412 (Version 3)
Quarter: 2013Q2

REPORT INFORMATION
  Report Type: Spontaneous
  Country: JP (occurrence: JP)
  Receive Date: 20130305
  Receipt Date: 20130412
  Transmission Date: 20140414
  Serious: Yes (Death, Life-Threatening, Hospitalization, Other)
  Sender: FDA-Public Use
  Company Number: JP-ELI_LILLY_AND_COMPANY-JP201303000026

PATIENT
  Age: 64 Year
  Sex: Male
  Weight: 59 kg

DRUGS (1)
  1. GEMZAR [Suspect]
     Indication: PANCREATIC CARCINOMA
     Dosage: 1400 MG, UNK
     Route: 042
     Dates: start: 20130117, end: 20130124

REACTIONS (7)
  - Interstitial lung disease [Fatal]
  - Malignant neoplasm progression [Fatal]
  - Disseminated intravascular coagulation [Unknown]
  - Enterococcal sepsis [Unknown]
  - Aspergillus infection [Unknown]
  - Platelet count decreased [Not Recovered/Not Resolved]
  - Pyrexia [Unknown]
